FAERS Safety Report 15541175 (Version 1)
Quarter: 2018Q4

REPORT INFORMATION
  Report Type: Spontaneous
  Country: ES (occurrence: ES)
  Receive Date: 20181023
  Receipt Date: 20181023
  Transmission Date: 20190205
  Serious: Yes (Other)
  Sender: FDA-Public Use
  Company Number: ES-MYLANLABS-2018M1077513

PATIENT
  Age: 61 Year
  Sex: Male

DRUGS (2)
  1. NEOBRUFEN [Suspect]
     Active Substance: IBUPROFEN
     Indication: PAIN
     Dosage: 4-5 YEARS BEFORE THE REPORT
  2. NEOBRUFEN [Suspect]
     Active Substance: IBUPROFEN
     Indication: INFLAMMATION
     Dosage: 1 DF, EVERY MORNING, 1 YEAR BEFORE THE REPORT

REACTIONS (1)
  - Myocardial infarction [Unknown]
